FAERS Safety Report 5794826-X (Version None)
Quarter: 2008Q2

REPORT INFORMATION
  Report Type: 
  Country: None (occurrence: None)
  Receive Date: 20080630
  Receipt Date: 20080627
  Transmission Date: 20081010
  Serious: Yes (Other)
  Sender: FDA-Public Use
  Company Number: B0523241A

PATIENT
  Age: 16 Year
  Sex: Male

DRUGS (4)
  1. AUGMENTIN '125' [Suspect]
     Indication: DRUG USE FOR UNKNOWN INDICATION
     Dosage: 250MG FOUR TIMES PER DAY
     Route: 048
     Dates: start: 20080520, end: 20080528
  2. LEVOFLOXACIN [Suspect]
     Route: 048
     Dates: start: 20080516
  3. GATIFLOXACIN [Concomitant]
     Indication: LYMPHADENOPATHY
     Route: 048
     Dates: start: 20080510
  4. ROCEPHIN [Concomitant]
     Indication: LYMPHADENOPATHY
     Dosage: 1G PER DAY
     Route: 042
     Dates: start: 20080520, end: 20080520

REACTIONS (6)
  - CONJUNCTIVITIS [None]
  - ERYTHEMA [None]
  - RASH GENERALISED [None]
  - STEVENS-JOHNSON SYNDROME [None]
  - STOMATITIS [None]
  - TOXIC SKIN ERUPTION [None]
